FAERS Safety Report 6200648-8 (Version None)
Quarter: 2009Q2

REPORT INFORMATION
  Report Type: 
  Country: None (occurrence: None)
  Receive Date: 20090522
  Receipt Date: 20090508
  Transmission Date: 20091009
  Serious: Yes (Other)
  Sender: FDA-Public Use
  Company Number: US-GENENTECH-282205

PATIENT
  Age: 63 Year
  Sex: Female

DRUGS (2)
  1. OMALIZUMAB [Suspect]
     Indication: ASTHMA
     Dosage: 300 MG, UNK
  2. DICLOFENAC SODIUM [Concomitant]
     Indication: OSTEOARTHRITIS

REACTIONS (1)
  - LICHEN PLANUS [None]
